FAERS Safety Report 9586611 (Version 1)
Quarter: 2013Q4

REPORT INFORMATION
  Report Type: Spontaneous
  Country: JP (occurrence: JP)
  Receive Date: 20131003
  Receipt Date: 20131003
  Transmission Date: 20140711
  Serious: Yes (Death, Hospitalization)
  Sender: FDA-Public Use
  Company Number: JP-SA-2013SA096544

PATIENT
  Age: 66 Year
  Sex: Male

DRUGS (2)
  1. TAXOTERE [Suspect]
     Indication: OESOPHAGEAL CARCINOMA
     Route: 065
  2. S-1 [Suspect]
     Indication: OESOPHAGEAL CARCINOMA
     Route: 065

REACTIONS (4)
  - Interstitial lung disease [Fatal]
  - Pyrexia [Fatal]
  - Respiratory distress [Fatal]
  - Pneumothorax [Fatal]
